FAERS Safety Report 18233251 (Version 1)
Quarter: 2020Q3

REPORT INFORMATION
  Report Type: Spontaneous
  Country: US (occurrence: US)
  Receive Date: 20200904
  Receipt Date: 20200904
  Transmission Date: 20201103
  Serious: No
  Sender: FDA-Public Use
  Company Number: US-OSMOTICA_PHARMACEUTICAL_US_LLC-POI0573202000394

PATIENT
  Age: 59 Year
  Sex: Male

DRUGS (5)
  1. OSMOLEX ER [Suspect]
     Active Substance: AMANTADINE
     Indication: PARKINSON^S DISEASE
     Dates: start: 20191219, end: 20191226
  2. OSMOLEX ER [Suspect]
     Active Substance: AMANTADINE
     Dates: start: 20191227, end: 202002
  3. OSMOLEX ER [Suspect]
     Active Substance: AMANTADINE
     Dates: start: 202002, end: 20200506
  4. OSMOLEX ER [Suspect]
     Active Substance: AMANTADINE
     Dates: start: 20200507, end: 20200513
  5. OSMOLEX ER [Suspect]
     Active Substance: AMANTADINE
     Dates: start: 20200514, end: 20200527

REACTIONS (1)
  - Oedema peripheral [Recovered/Resolved]

NARRATIVE: CASE EVENT DATE: 20200506
